FAERS Safety Report 11172772 (Version 1)
Quarter: 2015Q2

REPORT INFORMATION
  Report Type: Spontaneous
  Country: BR (occurrence: BR)
  Receive Date: 20150608
  Receipt Date: 20150608
  Transmission Date: 20150821
  Serious: Yes (Other)
  Sender: FDA-Public Use
  Company Number: BR-BAYER-2015-291578

PATIENT
  Age: 34 Year
  Sex: Female

DRUGS (10)
  1. CALCIUM CARBONATE [CALCIUM CARBONATE] [Concomitant]
     Indication: OSTEOPENIA
  2. DEXAMETHASON [DEXAMETHASONE] [Concomitant]
     Indication: FOETAL GROWTH RESTRICTION
     Dosage: UNK
     Route: 042
  3. KETOCONAZOLE. [Concomitant]
     Active Substance: KETOCONAZOLE
     Indication: PITUITARY-DEPENDENT CUSHING^S SYNDROME
     Dosage: 200 MG, BID
  4. DEXAMETHASON [DEXAMETHASONE] [Concomitant]
     Indication: FOETAL GROWTH RESTRICTION
  5. ACETYLSALICYLIC ACID({=100 MG) [Suspect]
     Active Substance: ASPIRIN
     Dosage: 100 MG, QD
  6. KETOCONAZOLE. [Concomitant]
     Active Substance: KETOCONAZOLE
     Indication: PITUITARY-DEPENDENT CUSHING^S SYNDROME
     Dosage: DAILY DOSE 400 MG
  7. KETOCONAZOLE. [Concomitant]
     Active Substance: KETOCONAZOLE
     Indication: PITUITARY-DEPENDENT CUSHING^S SYNDROME
     Dosage: 200 MG, BID
  8. VITAMIN D [COLECALCIFEROL] [Concomitant]
     Indication: OSTEOPENIA
  9. KETOCONAZOLE. [Concomitant]
     Active Substance: KETOCONAZOLE
     Indication: PITUITARY-DEPENDENT CUSHING^S SYNDROME
     Dosage: 200-400 MG, DAILY DOSE
  10. METHYLDOPA. [Concomitant]
     Active Substance: METHYLDOPA
     Indication: HYPERTENSION

REACTIONS (3)
  - Dyslipidaemia [None]
  - Maternal exposure during pregnancy [None]
  - Gestational diabetes [Recovered/Resolved]
